FAERS Safety Report 8837487 (Version 2)
Quarter: 2012Q4

REPORT INFORMATION
  Report Type: 
  Country: US (occurrence: US)
  Receive Date: 20121012
  Receipt Date: 20121113
  Transmission Date: 20130627
  Serious: No
  Sender: FDA-Public Use
  Company Number: US-PFIZER INC-2012253921

PATIENT
  Age: 69 Year
  Sex: Female
  Weight: 36.28 kg

DRUGS (6)
  1. LYRICA [Suspect]
     Indication: PAIN
     Dosage: 50 mg,daily
     Dates: start: 201104
  2. INSULIN [Concomitant]
     Indication: DIABETES
     Dosage: UNK
  3. BACLOFEN [Concomitant]
     Dosage: UNK
  4. ASPIRIN [Concomitant]
     Dosage: UNK
  5. TRAMADOL [Concomitant]
     Dosage: UNK
  6. DOXEPIN [Concomitant]
     Dosage: UNK

REACTIONS (2)
  - Asthenia [Unknown]
  - Somnolence [Unknown]
